FAERS Safety Report 6181001-2 (Version None)
Quarter: 2009Q2

REPORT INFORMATION
  Report Type: 
  Country: None (occurrence: None)
  Receive Date: 20090506
  Receipt Date: 20090428
  Transmission Date: 20091009
  Serious: Yes (Hospitalization)
  Sender: FDA-Public Use
  Company Number: SE-JNJFOC-20090406534

PATIENT
  Age: 37 Year
  Sex: Male

DRUGS (4)
  1. REMICADE [Suspect]
     Indication: CROHN'S DISEASE
     Dosage: RECEIVED A TOTAL OF 5 INFUSIONS
     Route: 042
  2. HUMIRA [Suspect]
     Indication: CROHN'S DISEASE
     Route: 058
  3. IMUREL [Suspect]
     Indication: CROHN'S DISEASE
  4. PENTASA [Concomitant]

REACTIONS (3)
  - CROHN'S DISEASE [None]
  - MALIGNANT MELANOMA [None]
  - THYROID CANCER [None]
